FAERS Safety Report 9058021 (Version 3)
Quarter: 2013Q2

REPORT INFORMATION
  Report Type: Spontaneous
  Country: GB (occurrence: GB)
  Receive Date: 20130211
  Receipt Date: 20130412
  Transmission Date: 20140414
  Serious: Yes (Other)
  Sender: FDA-Public Use
  Company Number: GB-BIOGENIDEC-2013BI010655

PATIENT
  Age: 67 Year
  Sex: Female

DRUGS (7)
  1. AVONEX [Suspect]
     Indication: PRODUCT USED FOR UNKNOWN INDICATION
     Route: 030
     Dates: start: 200910
  2. OXYBUTININ [Concomitant]
  3. BALOFEN (PRESUMED BACLOFEN) [Concomitant]
  4. COCODAMOL [Concomitant]
  5. AMANTADINE [Concomitant]
  6. AMITRIPTILYNE [Concomitant]
  7. BIZ INJECTIONS (PRESUMED B12 INJECTIONS) [Concomitant]

REACTIONS (4)
  - Uterine cancer [Recovered/Resolved with Sequelae]
  - Haematocrit decreased [Unknown]
  - Cellulitis [Not Recovered/Not Resolved]
  - Lymphoedema [Not Recovered/Not Resolved]
